FAERS Safety Report 13864089 (Version 1)
Quarter: 2017Q3

REPORT INFORMATION
  Report Type: Spontaneous
  Country: US (occurrence: US)
  Receive Date: 20170811
  Receipt Date: 20170811
  Transmission Date: 20171127
  Serious: Yes (Other)
  Sender: FDA-Public Use
  Company Number: None

PATIENT
  Age: 51 Year
  Sex: Female
  Weight: 65.25 kg

DRUGS (3)
  1. COCONUT OIL [Concomitant]
     Active Substance: COCONUT OIL
  2. MIRACLE FOOT REPAIR CREAM [Suspect]
     Active Substance: MENTHOL
     Indication: DRY SKIN
     Dosage: OTHER STRENGTH:OUNCES;QUANTITY:1 OUNCE(S);?
     Route: 061
     Dates: start: 20170803, end: 20170811
  3. PETROLEUM JELLY [Concomitant]
     Active Substance: PETROLATUM

REACTIONS (5)
  - Dry skin [None]
  - Wound [None]
  - Application site laceration [None]
  - Skin hypertrophy [None]
  - Skin exfoliation [None]

NARRATIVE: CASE EVENT DATE: 20170803
